FAERS Safety Report 6817964-9 (Version None)
Quarter: 2010Q3

REPORT INFORMATION
  Report Type: 
  Country: None (occurrence: None)
  Receive Date: 20100706
  Receipt Date: 20100603
  Transmission Date: 20110219
  Serious: No
  Sender: FDA-Public Use
  Company Number: US-BAYER-201025824NA

PATIENT
  Age: 46 Year
  Sex: Female
  Weight: 77 kg

DRUGS (2)
  1. ULTRAVIST 300 [Suspect]
     Indication: ABDOMINAL PAIN LOWER
     Dosage: TOTAL DAILY DOSE: 100 ML
     Route: 042
     Dates: start: 20100603, end: 20100603
  2. READI-CAT [Concomitant]
     Route: 048
     Dates: start: 20100603, end: 20100603

REACTIONS (1)
  - URTICARIA [None]
